FAERS Safety Report 18287652 (Version 5)
Quarter: 2024Q4

REPORT INFORMATION
  Report Type: Report from Study
  Country: IT (occurrence: IT)
  Receive Date: 20200921
  Receipt Date: 20241213
  Transmission Date: 20250115
  Serious: Yes (Hospitalization, Other)
  Sender: ACCORD
  Company Number: None

PATIENT
  Age: 93 Year
  Sex: Male

DRUGS (8)
  1. OXYBUTYNIN CHLORIDE [Suspect]
     Active Substance: OXYBUTYNIN CHLORIDE
     Indication: Product used for unknown indication
     Dosage: 45 MG, TOTAL
     Route: 048
     Dates: start: 20200707, end: 20200707
  2. DUTASTERIDE [Suspect]
     Active Substance: DUTASTERIDE
     Dosage: 7.5 MG, TOTAL
     Dates: start: 20200707, end: 20200707
  3. PANTOPRAZOLE [Suspect]
     Active Substance: PANTOPRAZOLE
     Dosage: 2 DF, TOTAL
     Dates: start: 20200707, end: 20200707
  4. LEVOSULPIRIDE [Suspect]
     Active Substance: LEVOSULPIRIDE
     Dosage: STRENGTH: 25 MG TABLETS, 50 MG, TOTAL
     Dates: start: 20200707, end: 20200707
  5. XARELTO [Suspect]
     Active Substance: RIVAROXABAN
     Dosage: STRENGTH: 15 MG, 45 MG, TOTAL
     Dates: start: 20200707, end: 20200707
  6. ALFUZOSIN HYDROCHLORIDE [Suspect]
     Active Substance: ALFUZOSIN HYDROCHLORIDE
     Dosage: 60 MG, TOTAL
     Route: 048
     Dates: start: 20200707, end: 20200707
  7. LASIX [Suspect]
     Active Substance: FUROSEMIDE
     Dosage: STRENGTH: 25 MG
     Route: 065
     Dates: start: 20200707, end: 20200707
  8. LEUCOVORIN CALCIUM [Suspect]
     Active Substance: LEUCOVORIN CALCIUM
     Dosage: 45 MG, TOTAL
     Dates: start: 20200707, end: 20200707

REACTIONS (3)
  - Drug abuse [Unknown]
  - Intentional overdose [Not Recovered/Not Resolved]
  - Disorganised speech [Not Recovered/Not Resolved]

NARRATIVE: CASE EVENT DATE: 20200707
